FAERS Safety Report 4444315-X (Version None)
Quarter: 2004Q3

REPORT INFORMATION
  Report Type: 
  Country: None (occurrence: None)
  Receive Date: 20040813
  Receipt Date: 20031030
  Transmission Date: 20050211
  Serious: No
  Sender: FDA-Public Use
  Company Number: US-JNJFOC-20040505973

PATIENT
  Age: 10 Year
  Sex: Male

DRUGS (1)
  1. CHILDREN'S MOTRIN [Suspect]
     Indication: PHARYNGITIS
     Dosage: 250 MG, 1 IN 6 HOUR, ORAL
     Route: 048
     Dates: start: 20031029

REACTIONS (2)
  - RASH PAPULAR [None]
  - RASH PRURITIC [None]
